FAERS Safety Report 9179916 (Version 3)
Quarter: 2013Q4

REPORT INFORMATION
  Report Type: Spontaneous
  Country: GB (occurrence: GB)
  Receive Date: 20130321
  Receipt Date: 20131001
  Transmission Date: 20140711
  Serious: Yes (Other)
  Sender: FDA-Public Use
  Company Number: GB-PFIZER INC-2013089880

PATIENT
  Age: 62 Year
  Sex: Male
  Weight: 127 kg

DRUGS (14)
  1. GABAPENTIN [Suspect]
     Indication: ARTHRALGIA
     Dosage: 300 MG, 3X/DAY
     Route: 048
     Dates: start: 20121112, end: 20121220
  2. ORAMORPH [Concomitant]
  3. PARACETAMOL [Concomitant]
  4. DALTEPARIN [Concomitant]
  5. DOCUSATE SODIUM [Concomitant]
  6. DIHYDROCODEINE [Concomitant]
  7. BENDROFLUMETHIAZIDE [Concomitant]
  8. LISINOPRIL [Concomitant]
  9. NIFEDIPINE [Concomitant]
  10. LANSOPRAZOLE [Concomitant]
  11. SIMVASTATIN [Concomitant]
  12. QUININE [Concomitant]
  13. TEMAZEPAM [Concomitant]
  14. DOSULEPIN [Concomitant]

REACTIONS (2)
  - Suicidal ideation [Recovered/Resolved with Sequelae]
  - Diaphragmatic paralysis [Unknown]
